FAERS Safety Report 17238137 (Version 1)
Quarter: 2020Q1

REPORT INFORMATION
  Report Type: Spontaneous
  Country: US (occurrence: US)
  Receive Date: 20200106
  Receipt Date: 20200106
  Transmission Date: 20200409
  Serious: No
  Sender: FDA-Public Use
  Company Number: US-PACIRA-201900315

PATIENT
  Sex: Male

DRUGS (2)
  1. EXPAREL [Suspect]
     Active Substance: BUPIVACAINE
     Indication: NERVE BLOCK
     Dosage: EXPAREL 20ML MIXED WITH MARCAINE 0.5% 20ML
  2. MARCAINE [Suspect]
     Active Substance: BUPIVACAINE HYDROCHLORIDE
     Indication: NERVE BLOCK
     Dosage: EXPAREL 20ML MIXED WITH MARCAINE 0.5% 20ML

REACTIONS (3)
  - Product administration error [Unknown]
  - Hypoaesthesia [Unknown]
  - Mobility decreased [Unknown]
